FAERS Safety Report 7108579-6 (Version None)
Quarter: 2010Q4

REPORT INFORMATION
  Report Type: 
  Country: None (occurrence: None)
  Receive Date: 20101115
  Receipt Date: 20101115
  Transmission Date: 20110411
  Serious: Yes (Disabling, Other)
  Sender: FDA-Public Use
  Company Number: None

PATIENT
  Age: 75 Year
  Sex: Female
  Weight: 54.4316 kg

DRUGS (2)
  1. BONIVA [Suspect]
     Indication: OSTEOPOROSIS
     Dosage: ONE ONCE A MONTH
     Dates: end: 20100801
  2. ACTONEL [Suspect]
     Dosage: ONE ONCE A MONTH

REACTIONS (4)
  - GINGIVAL INFECTION [None]
  - LOOSE TOOTH [None]
  - PRODUCT QUALITY ISSUE [None]
  - TEMPOROMANDIBULAR JOINT SYNDROME [None]
